FAERS Safety Report 4359715-6 (Version None)
Quarter: 2004Q2

REPORT INFORMATION
  Report Type: 
  Country: None (occurrence: None)
  Receive Date: 20040518
  Receipt Date: 20040421
  Transmission Date: 20050107
  Serious: Yes (Other)
  Sender: FDA-Public Use
  Company Number: PHEH2004US04511

PATIENT
  Age: 58 Year
  Sex: Female
  Weight: 90 kg

DRUGS (2)
  1. CAFERGOT [Suspect]
     Indication: MIGRAINE
     Dosage: UNK, UNK
     Route: 048
     Dates: end: 20040101
  2. BELLERGAL SPACETABS [Suspect]
     Indication: MIGRAINE
     Dosage: .6 MG, UNK
     Route: 048

REACTIONS (9)
  - COUGH [None]
  - DYSPNOEA [None]
  - FATIGUE [None]
  - HOARSENESS [None]
  - LUNG NEOPLASM [None]
  - PULMONARY FIBROSIS [None]
  - RAYNAUD'S PHENOMENON [None]
  - RESPIRATORY GAS EXCHANGE DISORDER [None]
  - RESTRICTIVE PULMONARY DISEASE [None]
